FAERS Safety Report 20612374 (Version 1)
Quarter: 2022Q1

REPORT INFORMATION
  Report Type: Spontaneous
  Country: BR (occurrence: None)
  Receive Date: 20220318
  Receipt Date: 20220318
  Transmission Date: 20220423
  Serious: Yes (Hospitalization)
  Sender: FDA-Public Use
  Company Number: BR-ROCHE-3049734

PATIENT
  Age: 64 Year
  Sex: Female
  Weight: 65.6 kg

DRUGS (1)
  1. HERCEPTIN [Suspect]
     Active Substance: TRASTUZUMAB
     Indication: Neoplasm
     Dosage: CONCENTRATION OF 440 (UNIT NOT INFORMED), DOSE 524.8 (UNIT NOT INFORMED) , DURING 4 HOURS, INTRAVENO
     Route: 041
     Dates: start: 20220204, end: 20220204

REACTIONS (3)
  - Pain [Recovered/Resolved]
  - Tremor [Recovered/Resolved]
  - Headache [Recovered/Resolved]

NARRATIVE: CASE EVENT DATE: 20220204
